FAERS Safety Report 13542453 (Version 1)
Quarter: 2017Q2

REPORT INFORMATION
  Report Type: Spontaneous
  Country: US (occurrence: US)
  Receive Date: 20170512
  Receipt Date: 20170512
  Transmission Date: 20170830
  Serious: No
  Sender: FDA-Public Use
  Company Number: US-ROCHE-729905

PATIENT
  Age: 41 Year
  Sex: Female
  Weight: 76 kg

DRUGS (7)
  1. AVASTIN [Suspect]
     Active Substance: BEVACIZUMAB
     Indication: PRIMITIVE NEUROECTODERMAL TUMOUR
     Dosage: DOSING AMOUNT REPORTED AS 10MG/KG
     Route: 042
  2. SYNTHROID [Concomitant]
     Active Substance: LEVOTHYROXINE SODIUM
     Route: 065
  3. ZOFRAN [Concomitant]
     Active Substance: ONDANSETRON HYDROCHLORIDE
     Route: 065
  4. DEXAMETHASONE. [Concomitant]
     Active Substance: DEXAMETHASONE
     Route: 065
  5. TEMODAR [Suspect]
     Active Substance: TEMOZOLOMIDE
     Indication: PRIMITIVE NEUROECTODERMAL TUMOUR
     Dosage: FREQUENCY REPORTED AS DAILY X 21 DAYS
     Route: 048
     Dates: start: 200910, end: 201009
  6. BACTRIM DS [Concomitant]
     Active Substance: SULFAMETHOXAZOLE\TRIMETHOPRIM
     Route: 065
  7. VITAMIN B12 [Concomitant]
     Active Substance: CYANOCOBALAMIN
     Route: 065

REACTIONS (1)
  - Thrombocytopenia [Unknown]

NARRATIVE: CASE EVENT DATE: 20100922
